FAERS Safety Report 8044753-2 (Version None)
Quarter: 2012Q1

REPORT INFORMATION
  Report Type: 
  Country: None (occurrence: None)
  Receive Date: 20120113
  Receipt Date: 20120109
  Transmission Date: 20120608
  Serious: Yes (Hospitalization)
  Sender: FDA-Public Use
  Company Number: HU-ELI_LILLY_AND_COMPANY-HU201110005326

PATIENT
  Sex: Female

DRUGS (4)
  1. OLANZAPINE [Suspect]
     Dosage: 300 MG, UNK
     Route: 030
     Dates: start: 20110929
  2. FLUPHENAZINE HCL [Concomitant]
     Dosage: 50 MG, UNK
  3. OLANZAPINE [Suspect]
     Indication: SCHIZOPHRENIA
     Dosage: 10 MG, BID
  4. OLANZAPINE [Suspect]
     Dosage: 5 MG, QD

REACTIONS (6)
  - SALIVARY HYPERSECRETION [None]
  - TREMOR [None]
  - GALACTORRHOEA [None]
  - HEART RATE INCREASED [None]
  - WEIGHT INCREASED [None]
  - ANXIETY [None]
